FAERS Safety Report 21705414 (Version 1)
Quarter: 2022Q4

REPORT INFORMATION
  Report Type: Spontaneous
  Country: SI (occurrence: SI)
  Receive Date: 20221209
  Receipt Date: 20221209
  Transmission Date: 20230113
  Serious: Yes (Other)
  Sender: FDA-Public Use
  Company Number: None

PATIENT
  Age: 63 Year
  Sex: Female

DRUGS (4)
  1. FLUOROURACIL [Suspect]
     Active Substance: FLUOROURACIL
     Indication: Rectosigmoid cancer
     Dosage: STRENGTH 50 MG/ML
     Dates: start: 20220329, end: 20220906
  2. OXALIPLATIN [Suspect]
     Active Substance: OXALIPLATIN
     Indication: Rectosigmoid cancer
     Dosage: STRENGTH  5 MG/ML
     Dates: start: 20220329, end: 20220906
  3. PANTHOL [Concomitant]
     Dosage: SOLUTION OR TABLET
  4. LINOLA UREA [Concomitant]

REACTIONS (4)
  - Fatigue [Unknown]
  - Diarrhoea [Unknown]
  - Neutropenia [Unknown]
  - Stoma site inflammation [Unknown]

NARRATIVE: CASE EVENT DATE: 20220517
